FAERS Safety Report 6636211-4 (Version None)
Quarter: 2010Q1

REPORT INFORMATION
  Report Type: 
  Country: None (occurrence: None)
  Receive Date: 20100316
  Receipt Date: 20100304
  Transmission Date: 20100710
  Serious: Yes (Other)
  Sender: FDA-Public Use
  Company Number: JP-PFIZER INC-2010029284

PATIENT
  Age: 36 Year
  Sex: Female

DRUGS (4)
  1. MEDROL [Suspect]
     Dosage: UNK
     Route: 048
  2. MEPTIN [Concomitant]
     Dosage: UNK
  3. SYMBICORT [Concomitant]
     Dosage: UNK
  4. MUCOSTA [Concomitant]
     Dosage: UNK

REACTIONS (1)
  - BREAST MASS [None]
